FAERS Safety Report 13107196 (Version 1)
Quarter: 2017Q1

REPORT INFORMATION
  Report Type: Spontaneous
  Country: FR (occurrence: FR)
  Receive Date: 20170112
  Receipt Date: 20170112
  Transmission Date: 20170428
  Serious: Yes (Other)
  Sender: FDA-Public Use
  Company Number: FR-BAXTER-2017BAX000113

PATIENT
  Age: 50 Year
  Sex: Female

DRUGS (4)
  1. PACLITAXEL. [Suspect]
     Active Substance: PACLITAXEL
     Indication: INVASIVE DUCTAL BREAST CARCINOMA
     Dosage: 8 COURSES
     Route: 042
     Dates: start: 20150220, end: 20150410
  2. ENDOXAN 1000 MG, POUDRE POUR SOLUTION INJECTABLE [Suspect]
     Active Substance: CYCLOPHOSPHAMIDE
     Indication: INVASIVE DUCTAL BREAST CARCINOMA
     Dosage: 3 COURSES OF FEC
     Route: 042
     Dates: start: 20141210, end: 20150122
  3. EPIRUBICIN MYLAN [Suspect]
     Active Substance: EPIRUBICIN
     Indication: INVASIVE DUCTAL BREAST CARCINOMA
     Dosage: 3 COURSES OF FEC
     Route: 042
     Dates: start: 20141210, end: 20150122
  4. FLUOROURACILE ACCORD [Suspect]
     Active Substance: FLUOROURACIL
     Indication: INVASIVE DUCTAL BREAST CARCINOMA
     Dosage: 3 COURSES OF FEC
     Route: 042
     Dates: start: 20141210, end: 20150122

REACTIONS (9)
  - External ear pain [Not Recovered/Not Resolved]
  - Atrophy [Unknown]
  - Nerve compression [Unknown]
  - Memory impairment [Not Recovered/Not Resolved]
  - Cognitive disorder [Unknown]
  - Axonal neuropathy [Not Recovered/Not Resolved]
  - Diplopia [Not Recovered/Not Resolved]
  - Carpal tunnel syndrome [Unknown]
  - Gait disturbance [Unknown]

NARRATIVE: CASE EVENT DATE: 20150102
